FAERS Safety Report 5118550-1 (Version None)
Quarter: 2006Q3

REPORT INFORMATION
  Report Type: 
  Country: None (occurrence: None)
  Receive Date: 20060927
  Receipt Date: 20060919
  Transmission Date: 20061208
  Serious: Yes (Other)
  Sender: FDA-Public Use
  Company Number: GXKR2006PL05782

PATIENT
  Age: 15 Year
  Sex: Male
  Weight: 54.5 kg

DRUGS (1)
  1. RANIC  (NGX) (RANITIDINE HYDROCHLORIDE) SOLUTION FOR INJECTION, 10MG/M [Suspect]
     Indication: PANCREATITIS
     Dosage: 150 MG, QD, INTRAVENOUS
     Route: 042
     Dates: start: 20060811, end: 20060814

REACTIONS (4)
  - ANXIETY [None]
  - ASTHENIA [None]
  - CHEST PAIN [None]
  - ERYTHEMA [None]
